FAERS Safety Report 9937365 (Version 1)
Quarter: 2014Q1

REPORT INFORMATION
  Report Type: Spontaneous
  Country: US (occurrence: US)
  Receive Date: 20140303
  Receipt Date: 20140303
  Transmission Date: 20141002
  Serious: Yes (Hospitalization, Other)
  Sender: FDA-Public Use
  Company Number: US-ROCHE-1351420

PATIENT
  Sex: Female

DRUGS (9)
  1. HERCEPTIN [Suspect]
     Indication: BREAST CANCER METASTATIC
     Route: 065
  2. CAPECITABINE [Suspect]
     Indication: BREAST CANCER METASTATIC
     Route: 065
     Dates: start: 201205
  3. KADCYLA [Suspect]
     Indication: BREAST CANCER METASTATIC
     Route: 065
     Dates: start: 20130411
  4. KADCYLA [Suspect]
     Route: 065
     Dates: start: 201305
  5. KADCYLA [Suspect]
     Route: 065
     Dates: start: 20130523
  6. LAPATINIB [Concomitant]
     Indication: BREAST CANCER METASTATIC
  7. EXEMESTANE [Concomitant]
     Indication: BREAST CANCER METASTATIC
  8. ZOLEDRONATE [Concomitant]
     Indication: BREAST CANCER METASTATIC
  9. AVONEX [Concomitant]
     Indication: BREAST CANCER METASTATIC

REACTIONS (6)
  - Oedema [Unknown]
  - Skin ulcer [Unknown]
  - Gastrointestinal haemorrhage [Unknown]
  - Malaise [Unknown]
  - Device related infection [Unknown]
  - Disease progression [Unknown]
